FAERS Safety Report 4441320-4 (Version None)
Quarter: 2004Q3

REPORT INFORMATION
  Report Type: 
  Country: None (occurrence: None)
  Receive Date: 20040728
  Receipt Date: 20040429
  Transmission Date: 20050211
  Serious: No
  Sender: FDA-Public Use
  Company Number: USA040466380

PATIENT
  Age: 60 Year
  Sex: Female
  Weight: 90 kg

DRUGS (5)
  1. STRATTERA [Suspect]
     Dosage: 100 MG IN THE MORNING
     Dates: start: 20040301
  2. LISINOPRIL [Concomitant]
  3. HYDROCHLOROTHIAZIDE [Concomitant]
  4. NEURONTIN [Concomitant]
  5. CELEBREX [Concomitant]

REACTIONS (4)
  - BLOOD PRESSURE DECREASED [None]
  - DIZZINESS [None]
  - EAR INFECTION [None]
  - WEIGHT DECREASED [None]
